FAERS Safety Report 16385427 (Version 1)
Quarter: 2019Q2

REPORT INFORMATION
  Report Type: Spontaneous
  Country: US (occurrence: US)
  Receive Date: 20190426
  Receipt Date: 20190426
  Transmission Date: 20190711
  Serious: Yes (Other)
  Sender: FDA-Public Use
  Company Number: None

PATIENT
  Age: 14 Year
  Sex: Male
  Weight: 82.1 kg

DRUGS (1)
  1. GENERIC INTUNIV [Suspect]
     Active Substance: GUANFACINE HYDROCHLORIDE
     Indication: ATTENTION DEFICIT/HYPERACTIVITY DISORDER
     Dosage: ?          OTHER DOSE:1 TAB;?
     Route: 048
     Dates: start: 20161122

REACTIONS (4)
  - Abnormal behaviour [None]
  - Condition aggravated [None]
  - Product substitution issue [None]
  - Tic [None]

NARRATIVE: CASE EVENT DATE: 20161122
